FAERS Safety Report 8297934-7 (Version None)
Quarter: 2012Q2

REPORT INFORMATION
  Report Type: 
  Country: None (occurrence: None)
  Receive Date: 20120419
  Receipt Date: 20120414
  Transmission Date: 20120825
  Serious: Yes (Other)
  Sender: FDA-Public Use
  Company Number: SE-BAYER-2012-004715

PATIENT
  Age: 48 Year
  Sex: Female

DRUGS (5)
  1. ANERVAN [Concomitant]
  2. AMLODIPINE [Concomitant]
  3. BETASERON [Suspect]
     Indication: MULTIPLE SCLEROSIS
     Dosage: UNK
     Dates: start: 20051201
  4. DICLOFENAC SODIUM [Concomitant]
  5. NAPROXEN [Concomitant]
     Dosage: 500 MG, UNK

REACTIONS (5)
  - MULTIPLE SCLEROSIS RELAPSE [None]
  - INFECTION [None]
  - ERYSIPELAS [None]
  - VARICOSE VEIN [None]
  - WOUND INFECTION FUNGAL [None]
